FAERS Safety Report 9759825 (Version 1)
Quarter: 2013Q4

REPORT INFORMATION
  Report Type: Spontaneous
  Country: IT (occurrence: IT)
  Receive Date: 20131216
  Receipt Date: 20131216
  Transmission Date: 20140711
  Serious: Yes (Hospitalization)
  Sender: FDA-Public Use
  Company Number: IT-PFIZER INC-2013353850

PATIENT
  Age: 80 Year
  Sex: Female

DRUGS (3)
  1. NORVASC [Suspect]
     Indication: HYPERTENSION
     Dosage: 1 DF, 1X/DAY
     Route: 048
     Dates: start: 20130101, end: 20131120
  2. ZYLORIC [Suspect]
     Indication: HYPERURICAEMIA
     Dosage: 300 MG, 1X/DAY
     Route: 048
     Dates: start: 20130101, end: 20131119
  3. COMBISARTAN [Suspect]
     Indication: HYPERTENSION
     Dosage: 1 DF, 1X/DAY
     Route: 048
     Dates: start: 20130101, end: 20131120

REACTIONS (5)
  - Rash morbilliform [Unknown]
  - Pruritus generalised [Unknown]
  - Lip oedema [Unknown]
  - Macroglossia [Unknown]
  - Renal failure acute [Unknown]
